FAERS Safety Report 16890868 (Version 1)
Quarter: 2019Q4

REPORT INFORMATION
  Report Type: Spontaneous
  Country: US (occurrence: US)
  Receive Date: 20191005
  Receipt Date: 20191005
  Transmission Date: 20200122
  Serious: No
  Sender: FDA-Public Use
  Company Number: None

PATIENT
  Age: 64 Year
  Sex: Female
  Weight: 108.5 kg

DRUGS (1)
  1. CLEVIDIPINE [Suspect]
     Active Substance: CLEVIDIPINE
     Indication: HYPERTENSIVE EMERGENCY
     Dates: start: 20190808, end: 20190809

REACTIONS (1)
  - Pyrexia [None]

NARRATIVE: CASE EVENT DATE: 20190808
